FAERS Safety Report 5525227-7 (Version None)
Quarter: 2007Q4

REPORT INFORMATION
  Report Type: 
  Country: None (occurrence: None)
  Receive Date: 20071126
  Receipt Date: 20071116
  Transmission Date: 20080405
  Serious: Yes (Other)
  Sender: FDA-Public Use
  Company Number: FR-ROCHE-532582

PATIENT
  Age: 14 Year
  Sex: Female
  Weight: 52.5 kg

DRUGS (3)
  1. ROCEPHIN [Suspect]
     Route: 065
  2. BACTRIM [Suspect]
     Indication: INFANTILE SEPTIC GRANULOMATOSIS
     Dosage: DOSE REPORTED AS 1 DOSE
     Route: 048
  3. VFEND [Suspect]
     Indication: DRUG USE FOR UNKNOWN INDICATION
     Route: 065

REACTIONS (12)
  - ABDOMINAL PAIN [None]
  - ANOREXIA [None]
  - BACK PAIN [None]
  - BLOOD PHOSPHORUS DECREASED [None]
  - BRONCHOPULMONARY ASPERGILLOSIS [None]
  - CHOLESTASIS [None]
  - CYTOLYTIC HEPATITIS [None]
  - DIARRHOEA [None]
  - HYPOCALCAEMIA [None]
  - NAUSEA [None]
  - RENAL IMPAIRMENT [None]
  - VOMITING [None]
